FAERS Safety Report 7843221-8 (Version None)
Quarter: 2011Q4

REPORT INFORMATION
  Report Type: 
  Country: None (occurrence: None)
  Receive Date: 20111025
  Receipt Date: 20111020
  Transmission Date: 20120403
  Serious: No
  Sender: FDA-Public Use
  Company Number: US-PFIZER INC-2011245389

PATIENT
  Sex: Female
  Weight: 111.11 kg

DRUGS (3)
  1. LYRICA [Suspect]
     Indication: PAIN IN EXTREMITY
     Dosage: 75 MG, 2X/DAY
  2. NAPROXEN [Concomitant]
     Indication: SWELLING
     Dosage: 500 MG, 2X/DAY
  3. NAPROXEN [Concomitant]
     Indication: INTERVERTEBRAL DISC PROTRUSION

REACTIONS (2)
  - BURNING SENSATION [None]
  - PAIN IN EXTREMITY [None]
